FAERS Safety Report 8300055 (Version 4)
Quarter: 2015Q1

REPORT INFORMATION
  Report Type: Spontaneous
  Country: US (occurrence: US)
  Receive Date: 20111219
  Receipt Date: 20150119
  Transmission Date: 20150721
  Serious: Yes (Disabling, Other)
  Sender: FDA-Public Use
  Company Number: US-ASTRAZENECA-2011SE56755

PATIENT
  Age: 65 Year
  Sex: Male

DRUGS (3)
  1. OTHER MEDICATIONS [Concomitant]
     Active Substance: UNSPECIFIED INGREDIENT
  2. CRESTOR [Suspect]
     Active Substance: ROSUVASTATIN CALCIUM
     Route: 048
  3. CRESTOR [Suspect]
     Active Substance: ROSUVASTATIN CALCIUM
     Route: 048

REACTIONS (6)
  - Cerebrovascular accident [Unknown]
  - Blood pressure abnormal [Unknown]
  - Peripheral arterial occlusive disease [Unknown]
  - Cardiac failure [Unknown]
  - Coronary artery disease [Not Recovered/Not Resolved]
  - Cardiac disorder [Unknown]
